FAERS Safety Report 18666492 (Version 3)
Quarter: 2022Q3

REPORT INFORMATION
  Report Type: Spontaneous
  Country: GB (occurrence: GB)
  Receive Date: 20201227
  Receipt Date: 20220714
  Transmission Date: 20221026
  Serious: No
  Sender: FDA-Public Use
  Company Number: GB-GW PHARMA-202012GBGW04475

PATIENT

DRUGS (1)
  1. CANNABIDIOL [Suspect]
     Active Substance: CANNABIDIOL
     Indication: Epilepsy
     Dosage: 600 MILLIGRAM, QD
     Route: 048

REACTIONS (4)
  - Tonic convulsion [Unknown]
  - Vomiting [Unknown]
  - Diarrhoea [Unknown]
  - Drug ineffective [Unknown]
